FAERS Safety Report 24831250 (Version 4)
Quarter: 2025Q4

REPORT INFORMATION
  Report Type: Report from Study
  Country: US (occurrence: US)
  Receive Date: 20250110
  Receipt Date: 20251215
  Transmission Date: 20260119
  Serious: Yes (Other)
  Sender: MYLAN
  Company Number: US-MYLANLABS-2025M1002277

PATIENT
  Sex: Female

DRUGS (16)
  1. DILANTIN [Suspect]
     Active Substance: PHENYTOIN
     Indication: Product used for unknown indication
     Dosage: UNK
     Route: 065
  2. DILANTIN [Suspect]
     Active Substance: PHENYTOIN
     Dosage: UNK
  3. DILANTIN [Suspect]
     Active Substance: PHENYTOIN
     Dosage: UNK
  4. DILANTIN [Suspect]
     Active Substance: PHENYTOIN
     Dosage: UNK
     Route: 065
  5. DILANTIN [Suspect]
     Active Substance: PHENYTOIN
     Dosage: 50 MILLIGRAM, BID (TWO 50MG A DAY)
     Route: 065
  6. DILANTIN [Suspect]
     Active Substance: PHENYTOIN
     Dosage: 50 MILLIGRAM, BID (TWO 50MG A DAY)
  7. DILANTIN [Suspect]
     Active Substance: PHENYTOIN
     Dosage: 50 MILLIGRAM, BID (TWO 50MG A DAY)
  8. DILANTIN [Suspect]
     Active Substance: PHENYTOIN
     Dosage: 50 MILLIGRAM, BID (TWO 50MG A DAY)
     Route: 065
  9. DILANTIN [Suspect]
     Active Substance: PHENYTOIN
     Dosage: UNK
     Route: 065
  10. DILANTIN [Suspect]
     Active Substance: PHENYTOIN
     Dosage: UNK
     Route: 065
  11. DILANTIN [Suspect]
     Active Substance: PHENYTOIN
     Dosage: UNK
  12. DILANTIN [Suspect]
     Active Substance: PHENYTOIN
     Dosage: UNK
  13. ELIQUIS [Suspect]
     Active Substance: APIXABAN
     Indication: Product used for unknown indication
     Dosage: UNK
  14. ELIQUIS [Suspect]
     Active Substance: APIXABAN
     Dosage: UNK
     Route: 065
  15. ELIQUIS [Suspect]
     Active Substance: APIXABAN
     Dosage: UNK
     Route: 065
  16. ELIQUIS [Suspect]
     Active Substance: APIXABAN
     Dosage: UNK

REACTIONS (11)
  - Seizure [Unknown]
  - Deep vein thrombosis [Unknown]
  - Pulmonary embolism [Unknown]
  - Autoimmune disorder [Unknown]
  - Thrombosis [Unknown]
  - Tissue injury [Unknown]
  - Illness [Unknown]
  - Coagulopathy [Unknown]
  - Dyspnoea [Unknown]
  - Pain [Unknown]
  - Product substitution issue [Unknown]
